FAERS Safety Report 9226425 (Version 1)
Quarter: 2013Q2

REPORT INFORMATION
  Report Type: Spontaneous
  Country: VE (occurrence: VE)
  Receive Date: 20130411
  Receipt Date: 20130411
  Transmission Date: 20140414
  Serious: Yes (Death, Other)
  Sender: FDA-Public Use
  Company Number: PHHY2011VE117912

PATIENT
  Sex: Female

DRUGS (1)
  1. DIOVAN A [Suspect]
     Dosage: UNK UKN, UNK

REACTIONS (4)
  - Death [Fatal]
  - Cerebrovascular accident [Unknown]
  - Renal disorder [Unknown]
  - Headache [Unknown]
